FAERS Safety Report 7849821-3 (Version None)
Quarter: 2011Q4

REPORT INFORMATION
  Report Type: 
  Country: None (occurrence: None)
  Receive Date: 20111025
  Receipt Date: 20111025
  Transmission Date: 20120403
  Serious: Yes (Hospitalization)
  Sender: FDA-Public Use
  Company Number: None

PATIENT
  Sex: Male
  Weight: 74.8 kg

DRUGS (3)
  1. IRINOTECAN HCL [Suspect]
     Dosage: 193 MG
     Dates: end: 20111015
  2. TEMOZOLOMIDE [Suspect]
     Dosage: 390 MG
     Dates: end: 20111015
  3. VINCRISTINE SULFATE [Suspect]
     Dosage: 2 MG
     Dates: end: 20111014

REACTIONS (10)
  - CATHETER SITE HAEMORRHAGE [None]
  - LUNG INFILTRATION [None]
  - PULMONARY OEDEMA [None]
  - AREFLEXIA [None]
  - INFUSION SITE HAEMORRHAGE [None]
  - MENTAL STATUS CHANGES [None]
  - GRIP STRENGTH DECREASED [None]
  - QUADRIPLEGIA [None]
  - TRACHEAL HAEMORRHAGE [None]
  - RESPIRATORY DISTRESS [None]
